FAERS Safety Report 9110102 (Version 4)
Quarter: 2013Q2

REPORT INFORMATION
  Report Type: Spontaneous
  Country: TW (occurrence: TW)
  Receive Date: 20130222
  Receipt Date: 20130522
  Transmission Date: 20140414
  Serious: Yes (Hospitalization)
  Sender: FDA-Public Use
  Company Number: TW-ROCHE-1191139

PATIENT
  Age: 56 Year
  Sex: Female

DRUGS (2)
  1. AVASTIN [Suspect]
     Indication: GLIOBLASTOMA MULTIFORME
     Route: 042
     Dates: start: 201211, end: 201302
  2. AVASTIN [Suspect]
     Route: 042
     Dates: start: 2013, end: 2013

REACTIONS (4)
  - Thrombocytopenia [Unknown]
  - Hypernatraemia [Recovered/Resolved]
  - Hypertension [Unknown]
  - Urine analysis abnormal [Unknown]
